FAERS Safety Report 24256605 (Version 1)
Quarter: 2024Q3

REPORT INFORMATION
  Report Type: Spontaneous
  Country: CN (occurrence: CN)
  Receive Date: 20240828
  Receipt Date: 20240828
  Transmission Date: 20241016
  Serious: Yes (Other)
  Sender: JOHNSON AND JOHNSON
  Company Number: CN-JNJFOC-20240859520

PATIENT
  Sex: Male
  Weight: 1.35 kg

DRUGS (3)
  1. MOTRIN INFANTS [Suspect]
     Active Substance: IBUPROFEN
     Indication: Patent ductus arteriosus
     Route: 048
     Dates: start: 20240802, end: 20240803
  2. MOTRIN INFANTS [Suspect]
     Active Substance: IBUPROFEN
     Indication: Pulmonary congestion
  3. MOTRIN INFANTS [Suspect]
     Active Substance: IBUPROFEN
     Indication: Drug therapy

REACTIONS (3)
  - Off label use [Unknown]
  - Oedema [Recovering/Resolving]
  - Urine output decreased [Recovering/Resolving]

NARRATIVE: CASE EVENT DATE: 20240802
